FAERS Safety Report 21629463 (Version 1)
Quarter: 2022Q4

REPORT INFORMATION
  Report Type: Spontaneous
  Country: NL (occurrence: NL)
  Receive Date: 20221122
  Receipt Date: 20221122
  Transmission Date: 20230112
  Serious: Yes (Other)
  Sender: FDA-Public Use
  Company Number: NL-BoehringerIngelheim-2022-BI-202870

PATIENT
  Age: 85 Year
  Sex: Male

DRUGS (1)
  1. PRADAXA [Suspect]
     Active Substance: DABIGATRAN ETEXILATE MESYLATE
     Indication: Product used for unknown indication

REACTIONS (5)
  - Dementia [Unknown]
  - Contusion [Unknown]
  - Pain [Unknown]
  - Pain in extremity [Unknown]
  - Speech disorder [Unknown]

NARRATIVE: CASE EVENT DATE: 20180101
